FAERS Safety Report 6889860-2 (Version None)
Quarter: 2010Q3

REPORT INFORMATION
  Report Type: 
  Country: None (occurrence: None)
  Receive Date: 20100730
  Receipt Date: 20080718
  Transmission Date: 20110219
  Serious: Yes (Other)
  Sender: FDA-Public Use
  Company Number: US-PFIZER INC-2008045979

PATIENT
  Sex: Female
  Weight: 72.6 kg

DRUGS (9)
  1. LIPITOR [Suspect]
     Indication: BLOOD CHOLESTEROL INCREASED
     Dates: end: 20080501
  2. POLYGAM S/D [Concomitant]
     Route: 042
  3. ATENOLOL [Concomitant]
  4. GLYBURIDE [Concomitant]
  5. ACYCLOVIR [Concomitant]
  6. CITRACAL [Concomitant]
  7. VITAMIN D [Concomitant]
  8. FOSAMAX [Concomitant]
  9. LISINOPRIL AND HYDROCHLOROTHIAZIDE [Concomitant]
     Dosage: 10MG/12.5MG QD

REACTIONS (1)
  - MUSCULAR WEAKNESS [None]
